FAERS Safety Report 23944000 (Version 2)
Quarter: 2024Q2

REPORT INFORMATION
  Report Type: Spontaneous
  Country: US (occurrence: US)
  Receive Date: 20240606
  Receipt Date: 20240611
  Transmission Date: 20240716
  Serious: No
  Sender: FDA-Public Use
  Company Number: US-SANDOZ-SDZ2023US076195

PATIENT

DRUGS (1)
  1. KETOROLAC TROMETHAMINE [Suspect]
     Active Substance: KETOROLAC TROMETHAMINE
     Indication: Product used for unknown indication
     Dosage: UNK
     Route: 065
     Dates: start: 20230131

REACTIONS (6)
  - Adverse drug reaction [Unknown]
  - Instillation site irritation [Unknown]
  - Instillation site pain [Unknown]
  - Instillation site irritation [Unknown]
  - Swelling face [Unknown]
  - Pharyngeal swelling [Unknown]
